FAERS Safety Report 9059716 (Version 1)
Quarter: 2013Q1

REPORT INFORMATION
  Report Type: Spontaneous
  Country: US (occurrence: None)
  Receive Date: 20130206
  Receipt Date: 20130206
  Transmission Date: 20140127
  Serious: No
  Sender: FDA-Public Use
  Company Number: None

PATIENT
  Sex: Male
  Weight: 47.7 kg

DRUGS (2)
  1. FLUOROURACIL [Suspect]
  2. OXALIPLATIN [Suspect]

REACTIONS (8)
  - Mucosal inflammation [None]
  - Weight decreased [None]
  - Cachexia [None]
  - Decreased appetite [None]
  - Mucosal dryness [None]
  - Dehydration [None]
  - Hyponatraemia [None]
  - Oral pain [None]
